FAERS Safety Report 5145416-3 (Version None)
Quarter: 2006Q4

REPORT INFORMATION
  Report Type: 
  Country: None (occurrence: None)
  Receive Date: 20061101
  Receipt Date: 20061023
  Transmission Date: 20070319
  Serious: Yes (Other)
  Sender: FDA-Public Use
  Company Number: B0444270A

PATIENT
  Age: 53 Year
  Sex: Male

DRUGS (7)
  1. BECONASE [Suspect]
     Indication: ASTHMA
     Dosage: 200 MCG/TWICE PER DAY/ INHALED
     Route: 055
  2. GLUCOCORTICOID (FORMULATION UNKNOWN) (GLUCOCORTICOID) [Suspect]
     Indication: ASTHMA
     Dosage: INHALED
     Route: 055
  3. STEROID [Concomitant]
  4. ROSUVASTATIN CALCIUM [Concomitant]
  5. ASPIRIN [Concomitant]
  6. RAMIPRIL [Concomitant]
  7. BISOPROLOL FUMARATE [Concomitant]

REACTIONS (5)
  - BLOOD CORTICOTROPHIN DECREASED [None]
  - BLOOD CORTISOL DECREASED [None]
  - CHEST PAIN [None]
  - CUSHING'S SYNDROME [None]
  - VENTRICULAR DYSFUNCTION [None]
